FAERS Safety Report 18229355 (Version 3)
Quarter: 2021Q1

REPORT INFORMATION
  Report Type: Spontaneous
  Country: US (occurrence: US)
  Receive Date: 20200903
  Receipt Date: 20210210
  Transmission Date: 20210419
  Serious: Yes (Other)
  Sender: FDA-Public Use
  Company Number: US-GILEAD-2020-0492160

PATIENT
  Age: 53 Year
  Sex: Male
  Weight: 66.21 kg

DRUGS (20)
  1. TIVICAY [Concomitant]
     Active Substance: DOLUTEGRAVIR SODIUM
  2. LYRICA [Concomitant]
     Active Substance: PREGABALIN
  3. FINASTERIDE. [Concomitant]
     Active Substance: FINASTERIDE
  4. BACTRIM [Concomitant]
     Active Substance: SULFAMETHOXAZOLE\TRIMETHOPRIM
  5. DESCOVY [Concomitant]
     Active Substance: EMTRICITABINE\TENOFOVIR ALAFENAMIDE FUMARATE
  6. EPIVIR [Concomitant]
     Active Substance: LAMIVUDINE
  7. KALETRA [Concomitant]
     Active Substance: LOPINAVIR\RITONAVIR
  8. RETROVIR [Concomitant]
     Active Substance: ZIDOVUDINE
  9. ZIAGEN [Concomitant]
     Active Substance: ABACAVIR SULFATE
  10. VIREAD [Suspect]
     Active Substance: TENOFOVIR DISOPROXIL FUMARATE
     Dosage: UNK
     Route: 048
     Dates: start: 200212, end: 200702
  11. ZERIT [Concomitant]
     Active Substance: STAVUDINE
  12. EMTRIVA [Concomitant]
     Active Substance: EMTRICITABINE
  13. NORVIR [Concomitant]
     Active Substance: RITONAVIR
  14. PREZISTA [Concomitant]
     Active Substance: DARUNAVIR ETHANOLATE
  15. TAMSULOSIN [Concomitant]
     Active Substance: TAMSULOSIN
  16. VIREAD [Suspect]
     Active Substance: TENOFOVIR DISOPROXIL FUMARATE
     Indication: HIV INFECTION
     Dosage: UNK
     Route: 048
     Dates: start: 200212, end: 200603
  17. TRUVADA [Suspect]
     Active Substance: EMTRICITABINE\TENOFOVIR DISOPROXIL FUMARATE
     Indication: HIV INFECTION
     Dosage: UNK
     Route: 048
     Dates: start: 200702, end: 201701
  18. EPZICOM [Concomitant]
     Active Substance: ABACAVIR SULFATE\LAMIVUDINE
  19. INTELENCE [Concomitant]
     Active Substance: ETRAVIRINE
  20. LORATADINE. [Concomitant]
     Active Substance: LORATADINE

REACTIONS (10)
  - Emotional distress [Unknown]
  - Pelvic fracture [Recovered/Resolved]
  - Osteopenia [Not Recovered/Not Resolved]
  - Bone density decreased [Not Recovered/Not Resolved]
  - Tooth fracture [Not Recovered/Not Resolved]
  - Rib fracture [Recovered/Resolved]
  - Anhedonia [Unknown]
  - Anxiety [Unknown]
  - Pain [Unknown]
  - Multiple fractures [Not Recovered/Not Resolved]

NARRATIVE: CASE EVENT DATE: 201907
